FAERS Safety Report 14619469 (Version 1)
Quarter: 2018Q1

REPORT INFORMATION
  Report Type: Spontaneous
  Country: US (occurrence: US)
  Receive Date: 20180309
  Receipt Date: 20180309
  Transmission Date: 20180509
  Serious: Yes (Other)
  Sender: FDA-Public Use
  Company Number: US-JNJFOC-20180311500

PATIENT
  Sex: Male

DRUGS (18)
  1. COLACE [Concomitant]
     Active Substance: DOCUSATE SODIUM
     Route: 065
  2. LASIX [Concomitant]
     Active Substance: FUROSEMIDE
     Route: 065
  3. NYSTATIN. [Concomitant]
     Active Substance: NYSTATIN
     Route: 065
  4. OXYGEN. [Concomitant]
     Active Substance: OXYGEN
     Indication: OXYGEN THERAPY
     Route: 065
  5. LAC-HYDRIN [Concomitant]
     Active Substance: AMMONIUM LACTATE
     Route: 065
  6. XARELTO [Suspect]
     Active Substance: RIVAROXABAN
     Indication: PRODUCT USED FOR UNKNOWN INDICATION
     Route: 048
  7. METOPROLOL. [Concomitant]
     Active Substance: METOPROLOL
     Route: 065
  8. BACTROBAN [Concomitant]
     Active Substance: MUPIROCIN\MUPIROCIN CALCIUM
     Route: 065
  9. CRESTOR [Concomitant]
     Active Substance: ROSUVASTATIN CALCIUM
     Route: 065
  10. THERAGRAN [Concomitant]
     Active Substance: VITAMINS
     Route: 065
  11. IMBRUVICA [Concomitant]
     Active Substance: IBRUTINIB
     Route: 065
  12. AMPICILLIN [Concomitant]
     Active Substance: AMPICILLIN
     Route: 065
  13. KLOR-CON M20 [Concomitant]
     Active Substance: POTASSIUM CHLORIDE
     Route: 065
  14. ECOTRIN [Concomitant]
     Active Substance: ASPIRIN
     Route: 065
  15. APRESOLIN [Concomitant]
     Active Substance: HYDRALAZINE HYDROCHLORIDE
     Route: 065
  16. MAG-OX [Concomitant]
     Active Substance: MAGNESIUM OXIDE
     Route: 065
  17. ALDACTONE [Concomitant]
     Active Substance: SPIRONOLACTONE
     Route: 065
  18. SENOKOT [Concomitant]
     Active Substance: SENNOSIDES
     Route: 065

REACTIONS (18)
  - Cellulitis orbital [Unknown]
  - Hypertension [Unknown]
  - Acute respiratory failure [Unknown]
  - Impaired healing [Unknown]
  - Diverticulitis [Unknown]
  - Skin ulcer [Unknown]
  - Obesity [Unknown]
  - Chronic kidney disease [Unknown]
  - Atrial fibrillation [Unknown]
  - Iron deficiency anaemia [Unknown]
  - Hypokalaemia [Unknown]
  - Chronic lymphocytic leukaemia [Unknown]
  - Abscess [Unknown]
  - Neoplasm malignant [Unknown]
  - Cellulitis [Unknown]
  - Hypomagnesaemia [Unknown]
  - Treatment noncompliance [Unknown]
  - Prostate cancer [Unknown]
